FAERS Safety Report 4471371-5 (Version None)
Quarter: 2004Q4

REPORT INFORMATION
  Report Type: 
  Country: None (occurrence: None)
  Receive Date: 20041006
  Receipt Date: 20040927
  Transmission Date: 20050328
  Serious: Yes (Life-Threatening)
  Sender: FDA-Public Use
  Company Number: K200401472

PATIENT
  Sex: Female

DRUGS (1)
  1. PITOCIN [Suspect]
     Indication: PREGNANCY
     Dates: start: 20020101, end: 20020101

REACTIONS (2)
  - CARDIO-RESPIRATORY ARREST [None]
  - HYPOTENSION [None]
